FAERS Safety Report 13159801 (Version 1)
Quarter: 2017Q1

REPORT INFORMATION
  Report Type: Spontaneous
  Country: JP (occurrence: JP)
  Receive Date: 20170127
  Receipt Date: 20170127
  Transmission Date: 20170428
  Serious: Yes (Other)
  Sender: FDA-Public Use
  Company Number: JP-MYLANLABS-2017M1003373

PATIENT

DRUGS (8)
  1. ATROPINE. [Suspect]
     Active Substance: ATROPINE
     Indication: INDUCTION OF ANAESTHESIA
     Dosage: 0.1 UNK, UNK
     Route: 042
  2. NITRAZEPAM [Suspect]
     Active Substance: NITRAZEPAM
     Indication: ANAESTHETIC PREMEDICATION
     Dosage: 7 MG, UNK
     Route: 065
  3. SEVOFLURANE. [Suspect]
     Active Substance: SEVOFLURANE
     Indication: ANAESTHESIA PROCEDURE
     Route: 065
  4. ATROPINE. [Suspect]
     Active Substance: ATROPINE
     Indication: ANAESTHETIC PREMEDICATION
     Dosage: 0.2 MG, ONCE
     Route: 054
  5. DEXMEDETOMIDINE. [Suspect]
     Active Substance: DEXMEDETOMIDINE
     Indication: ANAESTHESIA PROCEDURE
     Dosage: 0.7 ?G/KG, UNK
     Route: 042
  6. BUPIVACAINE. [Suspect]
     Active Substance: BUPIVACAINE
     Indication: PRODUCT USED FOR UNKNOWN INDICATION
     Dosage: 0.8 UNK, UNK
     Route: 065
  7. DEXMEDETOMIDINE. [Suspect]
     Active Substance: DEXMEDETOMIDINE
     Dosage: 0.5MCG/KG/H
     Route: 065
  8. KETAMINE [Suspect]
     Active Substance: KETAMINE
     Indication: ANAESTHESIA PROCEDURE
     Dosage: 1 MG/KG, UNK
     Route: 065

REACTIONS (1)
  - Upper airway obstruction [Recovered/Resolved]
